FAERS Safety Report 8811909 (Version 1)
Quarter: 2012Q4

REPORT INFORMATION
  Report Type: Spontaneous
  Country: DE (occurrence: None)
  Receive Date: 20120924
  Receipt Date: 20120924
  Transmission Date: 20130627
  Serious: Yes (Congenital Anomaly, Other)
  Sender: FDA-Public Use
  Company Number: E2B_00000386

PATIENT
  Sex: Female
  Weight: 2.95 kg

DRUGS (11)
  1. LAMOTRIGINE [Suspect]
     Indication: EPILEPSY
     Dosage: 300 mg/d for gestational week 10-11 (unknown), transplacental
     Route: 064
     Dates: start: 20110218
  2. LAMOTRIGINE [Suspect]
     Indication: EPILEPSY
     Dosage: 225 mg/d for gestational weel 10-12 (unknown), transplacental
     Route: 064
  3. LAMOTRIGINE [Suspect]
     Indication: EPILEPSY
     Dosage: 250 mg/d for gestational week 12-13 (unknown), transplacental
     Route: 064
  4. LAMOTRIGINE [Suspect]
     Indication: EPILEPSY
     Dosage: 275 mg/d for gestational week 13-15 (unknown), transplacental
     Route: 064
     Dates: end: 20111202
  5. LACOSAMIDE [Suspect]
     Dosage: 250 mg/d for gestational week 10 -11 (unknown, unk), transplacental
     Route: 064
     Dates: start: 20110218
  6. LACOSAMIDE [Suspect]
     Dosage: 250 mg/d for gestation week 11-12 (unknown, unk), transplacental
     Route: 064
  7. LACOSAMIDE [Suspect]
     Dosage: 200 mg/d for gestational week 12-13 (unknown, unk), transplacental
     Route: 064
  8. LACOSAMIDE [Suspect]
     Dosage: 150 mg/d for gestational week 13-14 (unknown, unk), transplacental
     Route: 064
  9. LACOSAMIDE [Suspect]
     Dosage: 100 mg/d for gestational week 14-15 (unknown, unk), transplacental
     Route: 064
  10. ESLICARBAZEPINE ACETATE (ZEBINIX) [Concomitant]
  11. FOLIC ACID (FOLIO FORTE) [Concomitant]

REACTIONS (4)
  - Small for dates baby [None]
  - Atrial septal defect [None]
  - Directional Doppler flow tests abnormal [None]
  - Maternal drugs affecting foetus [None]
